FAERS Safety Report 14695659 (Version 1)
Quarter: 2018Q1

REPORT INFORMATION
  Report Type: Spontaneous
  Country: FR (occurrence: FR)
  Receive Date: 20180329
  Receipt Date: 20180329
  Transmission Date: 20180509
  Serious: Yes (Hospitalization)
  Sender: FDA-Public Use
  Company Number: FR-ELI_LILLY_AND_COMPANY-FR201803011996

PATIENT
  Age: 81 Year
  Sex: Female

DRUGS (4)
  1. XGEVA [Suspect]
     Active Substance: DENOSUMAB
     Indication: METASTASES TO BONE
     Dosage: UNK UNK, UNKNOWN
     Route: 065
     Dates: start: 2015, end: 201712
  2. AFINITOR [Suspect]
     Active Substance: EVEROLIMUS
     Indication: METASTASES TO BONE
     Dosage: UNK UNK, UNKNOWN
     Route: 048
     Dates: start: 201712
  3. FORSTEO [Suspect]
     Active Substance: TERIPARATIDE
     Indication: OSTEOPOROTIC FRACTURE
     Dosage: UNK UNK, UNKNOWN
     Route: 065
  4. CLASTOBAN [Suspect]
     Active Substance: CLODRONIC ACID
     Indication: METASTASES TO BONE
     Dosage: UNK UNK, UNKNOWN
     Route: 065
     Dates: start: 2010, end: 2015

REACTIONS (1)
  - Osteonecrosis of jaw [Not Recovered/Not Resolved]

NARRATIVE: CASE EVENT DATE: 2017
